FAERS Safety Report 24062957 (Version 1)
Quarter: 2024Q3

REPORT INFORMATION
  Report Type: Spontaneous
  Country: US (occurrence: US)
  Receive Date: 20240709
  Receipt Date: 20240709
  Transmission Date: 20241016
  Serious: No
  Sender: SANOFI AVENTIS
  Company Number: US-SA-SAC20240628001261

PATIENT
  Sex: Female
  Weight: 81.64 kg

DRUGS (1)
  1. DUPIXENT [Suspect]
     Active Substance: DUPILUMAB
     Indication: Dermatitis atopic
     Dosage: 300 MG QOW
     Route: 058
     Dates: start: 202312

REACTIONS (5)
  - Rash pruritic [Recovering/Resolving]
  - Lacrimation increased [Recovering/Resolving]
  - Dry skin [Recovering/Resolving]
  - Eye pruritus [Recovering/Resolving]
  - Rash [Recovering/Resolving]
